FAERS Safety Report 6489283-4 (Version None)
Quarter: 2009Q4

REPORT INFORMATION
  Report Type: 
  Country: None (occurrence: None)
  Receive Date: 20091210
  Receipt Date: 20090929
  Transmission Date: 20100525
  Serious: No
  Sender: FDA-Public Use
  Company Number: US-AMGEN-KDL366846

PATIENT
  Sex: Female
  Weight: 65 kg

DRUGS (14)
  1. ENBREL [Suspect]
     Indication: DRUG USE FOR UNKNOWN INDICATION
     Route: 058
  2. FOSAMAX [Concomitant]
  3. AMBIEN [Concomitant]
     Route: 048
  4. ASTELIN [Concomitant]
  5. LIPITOR [Concomitant]
     Route: 048
  6. NAPROXEN [Concomitant]
     Route: 048
  7. LORAZEPAM [Concomitant]
     Route: 048
  8. ALBUTEROL [Concomitant]
  9. ASCORBIC ACID [Concomitant]
     Route: 048
  10. PRILOSEC [Concomitant]
     Route: 048
  11. VITAMIN D [Concomitant]
     Route: 048
  12. FISH OIL [Concomitant]
     Route: 048
  13. CALCIUM [Concomitant]
     Route: 048
  14. POTASSIUM [Concomitant]
     Route: 048

REACTIONS (4)
  - ARTHRALGIA [None]
  - CONDITION AGGRAVATED [None]
  - INJECTION SITE HAEMATOMA [None]
  - JOINT EFFUSION [None]
